FAERS Safety Report 4691233-8 (Version None)
Quarter: 2005Q2

REPORT INFORMATION
  Report Type: 
  Country: None (occurrence: None)
  Receive Date: 20050614
  Receipt Date: 20050531
  Transmission Date: 20051028
  Serious: Yes (Other)
  Sender: FDA-Public Use
  Company Number: 2005075271

PATIENT
  Age: 85 Year
  Sex: Female

DRUGS (1)
  1. BEXTRA [Suspect]
     Indication: ILL-DEFINED DISORDER
     Dosage: (2 IN 1 D)
     Dates: start: 20030101

REACTIONS (3)
  - COLON CANCER [None]
  - PAIN [None]
  - THROMBOSIS [None]
